FAERS Safety Report 8789846 (Version 2)
Quarter: 2012Q4

REPORT INFORMATION
  Report Type: 
  Country: US (occurrence: US)
  Receive Date: 20120917
  Receipt Date: 20121114
  Transmission Date: 20130627
  Serious: No
  Sender: FDA-Public Use
  Company Number: US-009507513-1209USA000999

PATIENT
  Age: 60 Year
  Sex: Female
  Weight: 48.98 kg

DRUGS (8)
  1. CLARITIN-D 24 HOUR [Suspect]
     Indication: HYPERSENSITIVITY
     Dosage: UNK, Once
     Route: 048
     Dates: start: 20120816, end: 20120817
  2. CLARITIN-D 24 HOUR [Suspect]
     Indication: MEDICAL OBSERVATION
  3. LIPITOR [Concomitant]
     Indication: BLOOD CHOLESTEROL
     Dosage: UNK, Unknown
  4. UNISOM (DOXYLAMINE SUCCINATE) [Concomitant]
     Indication: SLEEP DISORDER
     Dosage: UNK, Unknown
  5. BENADRYL [Concomitant]
     Indication: PRURITUS
     Dosage: UNK, Unknown
  6. BENADRYL [Concomitant]
     Indication: RASH
  7. VITAMIN D (UNSPECIFIED) [Concomitant]
     Indication: PRODUCT USED FOR UNKNOWN INDICATION
     Dosage: UNK, Unknown
  8. CALCIUM (UNSPECIFIED) [Concomitant]
     Indication: PRODUCT USED FOR UNKNOWN INDICATION
     Dosage: UNK, Unknown

REACTIONS (4)
  - Insomnia [Recovered/Resolved]
  - Asthenia [Recovered/Resolved]
  - Feeling abnormal [Recovered/Resolved]
  - Dry mouth [Recovered/Resolved]
